FAERS Safety Report 14493233 (Version 1)
Quarter: 2018Q1

REPORT INFORMATION
  Report Type: Spontaneous
  Country: US (occurrence: US)
  Receive Date: 20180205
  Receipt Date: 20180205
  Transmission Date: 20180509
  Serious: Yes (Hospitalization)
  Sender: FDA-Public Use
  Company Number: None

PATIENT

DRUGS (1)
  1. APIXABAN [Suspect]
     Active Substance: APIXABAN

REACTIONS (5)
  - Occult blood positive [None]
  - Haemorrhoids [None]
  - Diverticulitis [None]
  - Rectal haemorrhage [None]
  - Diarrhoea [None]
